FAERS Safety Report 4510875-3 (Version None)
Quarter: 2004Q4

REPORT INFORMATION
  Report Type: 
  Country: None (occurrence: None)
  Receive Date: 20041025
  Receipt Date: 20031209
  Transmission Date: 20050328
  Serious: Yes (Other)
  Sender: FDA-Public Use
  Company Number: NSADSS2003002515

PATIENT
  Age: 67 Year
  Sex: Male
  Weight: 91.173 kg

DRUGS (14)
  1. REMICADE [Suspect]
     Indication: RHEUMATOID ARTHRITIS
     Dosage: 1 IN 1 AS NECESSARY, INTRAVENOUS DRIP
     Route: 041
     Dates: start: 20021126, end: 20021126
  2. METHOTREXATE [Concomitant]
  3. CELEBREX [Concomitant]
  4. FLONASE [Concomitant]
  5. METOPROLOL TARTRATE [Concomitant]
  6. CLARINEX [Concomitant]
  7. PREVACID [Concomitant]
  8. GLYNASE [Concomitant]
  9. LIPITOR [Concomitant]
  10. AVANDIA [Concomitant]
  11. DARVOCET (PERCOCET) [Concomitant]
  12. ZESTERIL (LISINOPRIL) [Concomitant]
  13. BEXTRA [Concomitant]
  14. FOLIC ACID [Concomitant]

REACTIONS (1)
  - SKIN CANCER [None]
